FAERS Safety Report 11442999 (Version 1)
Quarter: 2015Q3

REPORT INFORMATION
  Report Type: Spontaneous
  Country: US (occurrence: US)
  Receive Date: 20150901
  Receipt Date: 20150901
  Transmission Date: 20151125
  Serious: No
  Sender: FDA-Public Use
  Company Number: US-ASTRAZENECA-2015SE81399

PATIENT
  Sex: Male
  Weight: 111.1 kg

DRUGS (2)
  1. OTHER  MEDICATIONS [Concomitant]
     Active Substance: UNSPECIFIED INGREDIENT
  2. KOMBIGLYZE XR [Suspect]
     Active Substance: METFORMIN HYDROCHLORIDE\SAXAGLIPTIN HYDROCHLORIDE
     Indication: TYPE 2 DIABETES MELLITUS
     Route: 048

REACTIONS (2)
  - Medication residue present [Unknown]
  - Product quality issue [Unknown]
